FAERS Safety Report 17370778 (Version 2)
Quarter: 2020Q1

REPORT INFORMATION
  Report Type: Spontaneous
  Country: US (occurrence: US)
  Receive Date: 20200205
  Receipt Date: 20200228
  Transmission Date: 20200409
  Serious: No
  Sender: FDA-Public Use
  Company Number: US-SA-2020SA024842

PATIENT
  Age: 44 Year
  Sex: Female
  Weight: 82.6 kg

DRUGS (1)
  1. DUPIXENT [Suspect]
     Active Substance: DUPILUMAB
     Indication: RHEUMATOID ARTHRITIS
     Dosage: 200 MG, QOW
     Route: 058
     Dates: start: 20191130

REACTIONS (2)
  - Product use in unapproved indication [Unknown]
  - Injection site irritation [Recovered/Resolved]

NARRATIVE: CASE EVENT DATE: 20191130
